FAERS Safety Report 12632152 (Version 2)
Quarter: 2016Q3

REPORT INFORMATION
  Report Type: Spontaneous
  Country: US (occurrence: US)
  Receive Date: 20160808
  Receipt Date: 20160808
  Transmission Date: 20161109
  Serious: No
  Sender: FDA-Public Use
  Company Number: US-BEH-2016061993

PATIENT
  Sex: Female

DRUGS (24)
  1. CEFDINIR. [Concomitant]
     Active Substance: CEFDINIR
  2. NOVOLOG [Concomitant]
     Active Substance: INSULIN ASPART
  3. LIDOCAINE/PRILOCAINE [Concomitant]
     Active Substance: LIDOCAINE\PRILOCAINE
  4. AMOXICILLIN. [Concomitant]
     Active Substance: AMOXICILLIN
  5. HUMULIN NOS [Concomitant]
     Active Substance: INSULIN HUMAN
  6. AMLODIPINE [Concomitant]
     Active Substance: AMLODIPINE BESYLATE
  7. MS CONTIN [Concomitant]
     Active Substance: MORPHINE SULFATE
  8. SENOKOT [Concomitant]
     Active Substance: SENNOSIDES
  9. HIZENTRA [Suspect]
     Active Substance: HUMAN IMMUNOGLOBULIN G
     Indication: IMMUNODEFICIENCY COMMON VARIABLE
     Route: 058
     Dates: start: 20111101
  10. DIPHENHYDRAMINE. [Concomitant]
     Active Substance: DIPHENHYDRAMINE
  11. METFORMIN [Concomitant]
     Active Substance: METFORMIN HYDROCHLORIDE
  12. PERCOCET [Concomitant]
     Active Substance: ACETAMINOPHEN\OXYCODONE HYDROCHLORIDE
  13. PAXIL [Concomitant]
     Active Substance: PAROXETINE HYDROCHLORIDE
  14. DIOVAN [Concomitant]
     Active Substance: VALSARTAN
  15. PROMETHAZINE [Concomitant]
     Active Substance: PROMETHAZINE\PROMETHAZINE HYDROCHLORIDE
  16. LIDODERM [Concomitant]
     Active Substance: LIDOCAINE
  17. ASPIRIN. [Concomitant]
     Active Substance: ASPIRIN
  18. DOXYCYCLINE. [Concomitant]
     Active Substance: DOXYCYCLINE
  19. ACETAMINOPHEN. [Concomitant]
     Active Substance: ACETAMINOPHEN
  20. EPIPEN [Concomitant]
     Active Substance: EPINEPHRINE
  21. SOMA [Concomitant]
     Active Substance: CARISOPRODOL
  22. HYDROCHLORTHIAZIDE [Concomitant]
     Active Substance: HYDROCHLOROTHIAZIDE
  23. CLONIDINE. [Concomitant]
     Active Substance: CLONIDINE
  24. BENADRYL [Concomitant]
     Active Substance: DIPHENHYDRAMINE HYDROCHLORIDE

REACTIONS (2)
  - Infusion site extravasation [Unknown]
  - Infusion site nodule [Unknown]
